FAERS Safety Report 9316178 (Version 2)
Quarter: 2013Q3

REPORT INFORMATION
  Report Type: Spontaneous
  Country: CH (occurrence: CH)
  Receive Date: 20130530
  Receipt Date: 20130704
  Transmission Date: 20140515
  Serious: Yes (Hospitalization, Other)
  Sender: FDA-Public Use
  Company Number: CH-PFIZER INC-2013163590

PATIENT
  Age: 62 Year
  Sex: Female

DRUGS (2)
  1. RELPAX [Suspect]
     Dosage: UNK
  2. AVONEX ^BIOGEN^ [Suspect]
     Indication: MULTIPLE SCLEROSIS
     Dosage: UNK
     Dates: start: 20001003, end: 20130318

REACTIONS (3)
  - Appendicitis [Recovered/Resolved]
  - Intestinal perforation [Recovered/Resolved]
  - Sepsis [Recovered/Resolved]
